FAERS Safety Report 12998406 (Version 2)
Quarter: 2016Q4

REPORT INFORMATION
  Report Type: Other
  Country: IR (occurrence: IR)
  Receive Date: 20161205
  Receipt Date: 20161212
  Transmission Date: 20170207
  Serious: Yes (Death)
  Sender: FDA-Public Use
  Company Number: IR-CHIESI USA INC.-IR-2016CHI001605

PATIENT
  Age: 29 Week

DRUGS (1)
  1. CUROSURF [Suspect]
     Active Substance: PORACTANT ALFA
     Indication: NEONATAL RESPIRATORY DISTRESS SYNDROME
     Dosage: 2.5 ML, UNK
     Route: 007

REACTIONS (1)
  - Pulmonary haemorrhage [Fatal]
